FAERS Safety Report 5527755-7 (Version None)
Quarter: 2007Q4

REPORT INFORMATION
  Report Type: 
  Country: None (occurrence: None)
  Receive Date: 20071123
  Receipt Date: 20071112
  Transmission Date: 20080405
  Serious: Yes (Hospitalization)
  Sender: FDA-Public Use
  Company Number: US021681

PATIENT
  Age: 29 Year
  Sex: Female
  Weight: 47.6277 kg

DRUGS (5)
  1. PROVIGIL [Suspect]
     Indication: HYPERSOMNIA
     Dosage: 200 MG QD ORAL
     Route: 048
     Dates: start: 20071016, end: 20071029
  2. PROVIGIL [Suspect]
     Indication: HYPERSOMNIA
     Dosage: 400 MG QD ORAL
     Route: 048
     Dates: start: 20071030, end: 20071106
  3. LASIX [Suspect]
     Indication: OEDEMA
     Dates: start: 20071101, end: 20071101
  4. PROZAC [Concomitant]
  5. WELLBUTRIN [Concomitant]

REACTIONS (8)
  - ARTHRALGIA [None]
  - DEHYDRATION [None]
  - DRUG RASH WITH EOSINOPHILIA AND SYSTEMIC SYMPTOMS [None]
  - LOCAL SWELLING [None]
  - LYMPHADENOPATHY [None]
  - MUSCULOSKELETAL STIFFNESS [None]
  - NO THERAPEUTIC RESPONSE [None]
  - OEDEMA [None]
